FAERS Safety Report 9503850 (Version 1)
Quarter: 2013Q3

REPORT INFORMATION
  Report Type: Spontaneous
  Country: US (occurrence: None)
  Receive Date: 20130905
  Receipt Date: 20130905
  Transmission Date: 20140515
  Serious: Yes (Disabling)
  Sender: FDA-Public Use
  Company Number: None

PATIENT
  Age: 85 Year
  Sex: Male
  Weight: 58.97 kg

DRUGS (4)
  1. PREDNISONE [Suspect]
     Indication: RESPIRATORY DISORDER
     Dates: start: 20130726, end: 20130730
  2. PREDNISONE [Suspect]
     Indication: OXYGEN SATURATION DECREASED
     Dates: start: 20130726, end: 20130730
  3. MULTIVITAMIN [Concomitant]
  4. ASPIRIN [Concomitant]

REACTIONS (2)
  - Adverse reaction [None]
  - Feeling abnormal [None]
